FAERS Safety Report 7217665-1 (Version None)
Quarter: 2011Q1

REPORT INFORMATION
  Report Type: 
  Country: None (occurrence: None)
  Receive Date: 20110110
  Receipt Date: 20110104
  Transmission Date: 20110831
  Serious: Yes (Hospitalization)
  Sender: FDA-Public Use
  Company Number: US-ROCHE-751737

PATIENT
  Sex: Female

DRUGS (3)
  1. XELODA [Suspect]
     Indication: COLON CANCER
     Dosage: 3 TABLETS AT AM AND 2 AT PM
     Route: 048
     Dates: start: 20100801, end: 20101101
  2. XELODA [Suspect]
     Dosage: DOSE REDUCED
     Route: 048
  3. NEXAVAR [Suspect]
     Indication: COLON CANCER
     Route: 065

REACTIONS (1)
  - FISTULA [None]
